FAERS Safety Report 25163805 (Version 1)
Quarter: 2025Q2

REPORT INFORMATION
  Report Type: Spontaneous
  Country: PL (occurrence: PL)
  Receive Date: 20250405
  Receipt Date: 20250405
  Transmission Date: 20250717
  Serious: Yes (Other)
  Sender: AUROBINDO
  Company Number: PL-SA-2024SA241626

PATIENT
  Age: 48 Year
  Sex: Female

DRUGS (3)
  1. LEFLUNOMIDE [Suspect]
     Active Substance: LEFLUNOMIDE
     Indication: Rheumatoid arthritis
     Route: 065
  2. LEFLUNOMIDE [Suspect]
     Active Substance: LEFLUNOMIDE
     Route: 065
     Dates: start: 2011
  3. CORTICOSTEROID NOS [Concomitant]
     Active Substance: CORTICOSTEROID NOS
     Indication: Rheumatoid arthritis
     Route: 065
     Dates: end: 201108

REACTIONS (1)
  - Haemorrhagic diathesis [Recovered/Resolved]
